FAERS Safety Report 21035869 (Version 1)
Quarter: 2022Q3

REPORT INFORMATION
  Report Type: Spontaneous
  Country: US (occurrence: US)
  Receive Date: 20220701
  Receipt Date: 20220701
  Transmission Date: 20221027
  Serious: No
  Sender: FDA-Public Use
  Company Number: US-SA-SAC20220630000020

PATIENT
  Age: 22 Year
  Sex: Female
  Weight: 61.69 kg

DRUGS (8)
  1. DUPIXENT [Suspect]
     Active Substance: DUPILUMAB
     Indication: Dermatitis atopic
     Dosage: 600 MG, 1X
     Route: 058
     Dates: start: 20220619, end: 20220619
  2. TRIAMCINOLONE ACETONIDE [Concomitant]
     Active Substance: TRIAMCINOLONE ACETONIDE
  3. ALBUTEROL SULFATE [Concomitant]
     Active Substance: ALBUTEROL SULFATE
  4. TACROLIMUS [Concomitant]
     Active Substance: TACROLIMUS
  5. HYDROXYZINE HYDROCHLORIDE [Concomitant]
     Active Substance: HYDROXYZINE HYDROCHLORIDE
  6. SUMATRIPTAN [Concomitant]
     Active Substance: SUMATRIPTAN
  7. LEVALBUTEROL [Concomitant]
     Active Substance: LEVALBUTEROL
  8. EUCRISA [Concomitant]
     Active Substance: CRISABOROLE

REACTIONS (1)
  - Injection site pain [Recovered/Resolved]

NARRATIVE: CASE EVENT DATE: 20220619
